FAERS Safety Report 8366889-9 (Version None)
Quarter: 2012Q2

REPORT INFORMATION
  Report Type: 
  Country: None (occurrence: None)
  Receive Date: 20120515
  Receipt Date: 20120515
  Transmission Date: 20120825
  Serious: Yes (Other)
  Sender: FDA-Public Use
  Company Number: None

PATIENT
  Sex: Male
  Weight: 94 kg

DRUGS (1)
  1. LEVOFLOXACIN [Suspect]
     Indication: PNEUMONIA
     Dosage: LEVOFLOXACIN 750MG DAILY IV
     Route: 042
     Dates: start: 20120103, end: 20120114

REACTIONS (2)
  - DRUG HYPERSENSITIVITY [None]
  - PLATELET COUNT DECREASED [None]
